FAERS Safety Report 8213950-5 (Version None)
Quarter: 2012Q1

REPORT INFORMATION
  Report Type: 
  Country: None (occurrence: None)
  Receive Date: 20120316
  Receipt Date: 20120312
  Transmission Date: 20120608
  Serious: No
  Sender: FDA-Public Use
  Company Number: US-PFIZER INC-2012065325

PATIENT
  Sex: Female
  Weight: 68.027 kg

DRUGS (3)
  1. AZITHROMYCIN [Suspect]
     Dosage: 250 MG, DAILY
     Route: 048
  2. AZITHROMYCIN [Suspect]
     Indication: INFECTION PROPHYLAXIS
     Dosage: 500 MG, 1X/DAY
     Route: 048
     Dates: start: 20120227
  3. LEVOXYL [Concomitant]
     Indication: THYROID DISORDER
     Dosage: 20 UG, DAILY

REACTIONS (1)
  - ARRHYTHMIA [None]
